FAERS Safety Report 11156724 (Version 3)
Quarter: 2015Q3

REPORT INFORMATION
  Report Type: Spontaneous
  Country: CN (occurrence: CN)
  Receive Date: 20150602
  Receipt Date: 20150729
  Transmission Date: 20151125
  Serious: Yes (Hospitalization, Other)
  Sender: FDA-Public Use
  Company Number: CN-GLAXOSMITHKLINE-CN2015GSK072760

PATIENT
  Sex: Male

DRUGS (11)
  1. HEPTODIN [Suspect]
     Active Substance: LAMIVUDINE
     Indication: ASCITES
     Dosage: 1 DF, QD
     Dates: start: 200302
  2. HEPTODIN [Suspect]
     Active Substance: LAMIVUDINE
     Dosage: UNK
  3. NEXAVAR [Suspect]
     Active Substance: SORAFENIB
     Indication: HEPATIC CANCER
     Dosage: 2 UNK, BID
     Route: 048
     Dates: start: 2015
  4. ADEFOVIR DIPIVOXIL. [Suspect]
     Active Substance: ADEFOVIR DIPIVOXIL
     Indication: HEPATITIS B
     Dosage: 1 UNK, QD
     Route: 048
     Dates: start: 2015
  5. HEPTODIN [Suspect]
     Active Substance: LAMIVUDINE
     Indication: HEPATITIS B
     Dosage: UNK
     Route: 048
     Dates: start: 200202
  6. HEPTODIN [Suspect]
     Active Substance: LAMIVUDINE
     Dosage: 1 DF, QD
     Dates: end: 20150516
  7. HEPTODIN [Suspect]
     Active Substance: LAMIVUDINE
     Dosage: UNK
  8. HEPTODIN [Suspect]
     Active Substance: LAMIVUDINE
     Dosage: UNK
  9. HEPTODIN [Suspect]
     Active Substance: LAMIVUDINE
     Dosage: UNK
  10. HEPTODIN [Suspect]
     Active Substance: LAMIVUDINE
     Dosage: 1 DF, QD
     Dates: start: 20150517
  11. HEPTODIN [Suspect]
     Active Substance: LAMIVUDINE
     Dosage: UNK

REACTIONS (15)
  - Hepatitis B [Not Recovered/Not Resolved]
  - Decreased appetite [Recovered/Resolved]
  - Product quality issue [Unknown]
  - Diarrhoea [Recovered/Resolved]
  - Hydrothorax [Recovering/Resolving]
  - Jaundice [Recovering/Resolving]
  - Ascites [Recovering/Resolving]
  - Hepatic failure [Unknown]
  - Suspected counterfeit product [Unknown]
  - Hepatic cancer [Recovering/Resolving]
  - Cough [Recovered/Resolved]
  - Nasopharyngitis [Recovered/Resolved]
  - Abdominal pain upper [Recovering/Resolving]
  - Abdominal discomfort [Recovered/Resolved]
  - Hepatic function abnormal [Not Recovered/Not Resolved]

NARRATIVE: CASE EVENT DATE: 200210
